FAERS Safety Report 17962431 (Version 3)
Quarter: 2020Q3

REPORT INFORMATION
  Report Type: Spontaneous
  Country: US (occurrence: US)
  Receive Date: 20200630
  Receipt Date: 20200727
  Transmission Date: 20201103
  Serious: Yes (Other)
  Sender: FDA-Public Use
  Company Number: US-SA-2020SA164522

PATIENT

DRUGS (2)
  1. LANTUS [Suspect]
     Active Substance: INSULIN GLARGINE
     Dosage: LAST NIGHT SHE TOOK HER DOSE AND IN THE MORNING HER SUGAR WAS HIGH SO SHE TOOK ANOTHER DOSE THAT MOR
     Route: 065
  2. LANTUS [Suspect]
     Active Substance: INSULIN GLARGINE
     Indication: TYPE 2 DIABETES MELLITUS
     Dosage: 22 IU, QD
     Route: 065

REACTIONS (6)
  - Blood glucose increased [Unknown]
  - Product storage error [Unknown]
  - Therapeutic response decreased [Unknown]
  - Diabetes mellitus inadequate control [Unknown]
  - Wrong technique in device usage process [Unknown]
  - Intentional product misuse [Unknown]
